FAERS Safety Report 10037530 (Version 1)
Quarter: 2014Q1

REPORT INFORMATION
  Report Type: Spontaneous
  Country: US (occurrence: None)
  Receive Date: 20140324
  Receipt Date: 20140324
  Transmission Date: 20141002
  Serious: Yes (Other)
  Sender: FDA-Public Use
  Company Number: 2014AP001981

PATIENT
  Age: 66 Year
  Sex: Male
  Weight: 71.7 kg

DRUGS (10)
  1. RAMIPRIL [Suspect]
     Indication: PROTEINURIA
     Route: 048
     Dates: start: 20080317
  2. RAPAMUNE [Suspect]
     Indication: PROPHYLAXIS AGAINST TRANSPLANT REJECTION
     Route: 048
     Dates: start: 20080422
  3. OMEPRAZOLE [Concomitant]
  4. ZOCOR [Concomitant]
  5. ERGOCALCIFEROL [Concomitant]
  6. METOPROLOL [Concomitant]
  7. ASA [Concomitant]
  8. AMLODIPINE [Concomitant]
  9. CELLCEPT [Concomitant]
  10. MULTIVITAMIN [Concomitant]

REACTIONS (2)
  - Basal cell carcinoma [None]
  - Seborrhoeic keratosis [None]
